FAERS Safety Report 7770679-5 (Version None)
Quarter: 2011Q3

REPORT INFORMATION
  Report Type: 
  Country: None (occurrence: None)
  Receive Date: 20110922
  Receipt Date: 20100827
  Transmission Date: 20111222
  Serious: No
  Sender: FDA-Public Use
  Company Number: US-ASTRAZENECA-2007UW27642

PATIENT
  Age: 44 Year
  Sex: Female
  Weight: 52.2 kg

DRUGS (2)
  1. RISPERDAL [Concomitant]
     Indication: DEPRESSION
     Dates: start: 20050101
  2. SEROQUEL [Suspect]
     Indication: DEPRESSION
     Dosage: 25- 400 MG
     Route: 048
     Dates: start: 20040317, end: 20070424

REACTIONS (2)
  - DIABETES MELLITUS [None]
  - DIABETIC COMPLICATION [None]
